FAERS Safety Report 4948235-3 (Version None)
Quarter: 2006Q1

REPORT INFORMATION
  Report Type: 
  Country: None (occurrence: None)
  Receive Date: 20060320
  Receipt Date: 20060307
  Transmission Date: 20060701
  Serious: Yes (Hospitalization, Other)
  Sender: FDA-Public Use
  Company Number: 2006PK00499

PATIENT
  Age: 27204 Day
  Sex: Female
  Weight: 58 kg

DRUGS (2)
  1. NOLVADEX [Suspect]
     Indication: BREAST CANCER
     Route: 048
     Dates: start: 20020705, end: 20060219
  2. NOLVADEX [Suspect]
     Route: 048
     Dates: start: 20060226

REACTIONS (1)
  - CERVICAL POLYP [None]
